FAERS Safety Report 25627654 (Version 3)
Quarter: 2025Q3

REPORT INFORMATION
  Report Type: Spontaneous
  Country: US (occurrence: US)
  Receive Date: 20250731
  Receipt Date: 20250930
  Transmission Date: 20251021
  Serious: Yes (Other)
  Sender: BIOMARIN
  Company Number: US-SA-2025SA219374

PATIENT
  Age: 22 Year
  Sex: Male

DRUGS (1)
  1. LARONIDASE [Suspect]
     Active Substance: LARONIDASE
     Indication: Mucopolysaccharidosis I
     Dosage: 29 (UNITS NOT PROVIDED) TOTAL DOSE ADMINISTERED, QW
     Dates: start: 201007

REACTIONS (6)
  - Deafness [Not Recovered/Not Resolved]
  - Visual impairment [Not Recovered/Not Resolved]
  - Retinal disorder [Unknown]
  - Hypoaesthesia [Unknown]
  - Sleep disorder due to a general medical condition [Unknown]
  - Mental disorder [Unknown]
